FAERS Safety Report 23342931 (Version 1)
Quarter: 2023Q4

REPORT INFORMATION
  Report Type: Spontaneous
  Country: US (occurrence: US)
  Receive Date: 20231227
  Receipt Date: 20231227
  Transmission Date: 20240109
  Serious: Yes (Other)
  Sender: FDA-Public Use
  Company Number: US-AMGEN-USASP2023228183

PATIENT

DRUGS (2)
  1. PANITUMUMAB [Suspect]
     Active Substance: PANITUMUMAB
     Indication: Colorectal cancer metastatic
     Dosage: UNK
     Route: 042
  2. NIRAPARIB [Suspect]
     Active Substance: NIRAPARIB
     Indication: Colorectal cancer metastatic
     Dosage: UNK 200MG OR300MG BASED ON BODYWEIGHT AND PLATELET COUNT
     Route: 048

REACTIONS (9)
  - Neutropenia [Unknown]
  - Stomatitis [Unknown]
  - Anaemia [Unknown]
  - Dermatitis [Unknown]
  - Hypertension [Unknown]
  - Rash [Unknown]
  - Dry skin [Unknown]
  - Paronychia [Unknown]
  - Therapy partial responder [Unknown]
